FAERS Safety Report 4990990-0 (Version None)
Quarter: 2006Q2

REPORT INFORMATION
  Report Type: 
  Country: None (occurrence: None)
  Receive Date: 20060503
  Receipt Date: 20050607
  Transmission Date: 20061013
  Serious: Yes (Hospitalization, Disabling)
  Sender: FDA-Public Use
  Company Number: US-MERCK-0506USA01070

PATIENT
  Age: 49 Year
  Sex: Female
  Weight: 68 kg

DRUGS (2)
  1. VIOXX [Suspect]
     Indication: ARTHRITIS
     Route: 048
     Dates: start: 19990501, end: 20040901
  2. WELLBUTRIN [Concomitant]
     Route: 065

REACTIONS (12)
  - ARTHRALGIA [None]
  - BIPOLAR DISORDER [None]
  - CEREBROVASCULAR ACCIDENT [None]
  - DRUG ABUSER [None]
  - FALL [None]
  - HYPOVOLAEMIA [None]
  - MULTIPLE SCLEROSIS [None]
  - OPTIC NEURITIS [None]
  - PALPITATIONS [None]
  - PEPTIC ULCER [None]
  - RHINITIS ALLERGIC [None]
  - SYNCOPE [None]
